FAERS Safety Report 9351305 (Version 1)
Quarter: 2013Q2

REPORT INFORMATION
  Report Type: Spontaneous
  Country: DE (occurrence: DE)
  Receive Date: 20130617
  Receipt Date: 20130617
  Transmission Date: 20140414
  Serious: Yes (Hospitalization)
  Sender: FDA-Public Use
  Company Number: PHHY2013DE059494

PATIENT
  Age: 60 Year
  Sex: Male

DRUGS (4)
  1. RAMIPRIL [Suspect]
  2. ANAESTHETIC [Concomitant]
  3. NOREPINEPHRINE [Concomitant]
  4. ATROPINE [Concomitant]

REACTIONS (16)
  - Cardiovascular disorder [Unknown]
  - Haemorrhagic diathesis [Recovered/Resolved]
  - Fibrin D dimer increased [Unknown]
  - Fibrinolysis increased [Unknown]
  - Disseminated intravascular coagulation [Unknown]
  - Angioedema [Unknown]
  - Multi-organ failure [Unknown]
  - Lactic acidosis [Unknown]
  - Shock [Unknown]
  - Capillary leak syndrome [Unknown]
  - Blood lactate dehydrogenase decreased [Unknown]
  - Anuria [Unknown]
  - Blood pressure decreased [Unknown]
  - Hypersensitivity [Unknown]
  - Erythema [Unknown]
  - Anaphylactic reaction [Unknown]
